FAERS Safety Report 15012794 (Version 2)
Quarter: 2018Q3

REPORT INFORMATION
  Report Type: Spontaneous
  Country: DE (occurrence: DE)
  Receive Date: 20180614
  Receipt Date: 20180716
  Transmission Date: 20181010
  Serious: Yes (Death, Hospitalization, Disabling)
  Sender: FDA-Public Use
  Company Number: DE-TEVA-2018-DE-907727

PATIENT
  Age: 78 Year
  Sex: Male
  Weight: 75 kg

DRUGS (4)
  1. DOXORUBICIN [Suspect]
     Active Substance: DOXORUBICIN
     Indication: NON-HODGKIN^S LYMPHOMA
     Route: 042
     Dates: start: 20171115, end: 20180201
  2. VINCRISTINE [Suspect]
     Active Substance: VINCRISTINE
     Indication: NON-HODGKIN^S LYMPHOMA
     Route: 042
     Dates: start: 20171115, end: 20180201
  3. MABTHERA [Suspect]
     Active Substance: RITUXIMAB
     Indication: NON-HODGKIN^S LYMPHOMA
     Route: 042
     Dates: start: 20171115, end: 20180131
  4. CYCLOPHOSPHAMID [Suspect]
     Active Substance: CYCLOPHOSPHAMIDE
     Indication: NON-HODGKIN^S LYMPHOMA
     Route: 042
     Dates: start: 20171115, end: 20180201

REACTIONS (10)
  - Pneumothorax [Fatal]
  - Respiratory distress [Fatal]
  - Pulmonary embolism [Fatal]
  - Chemical poisoning [Fatal]
  - Emphysema [Fatal]
  - Pneumomediastinum [Fatal]
  - Interstitial lung disease [Fatal]
  - Pneumonia [Fatal]
  - Dyspnoea [Fatal]
  - Asthenia [Fatal]

NARRATIVE: CASE EVENT DATE: 20180130
